FAERS Safety Report 14618561 (Version 4)
Quarter: 2018Q3

REPORT INFORMATION
  Report Type: Spontaneous
  Country: FR (occurrence: FR)
  Receive Date: 20180309
  Receipt Date: 20180914
  Transmission Date: 20181010
  Serious: Yes (Death, Disabling, Other)
  Sender: FDA-Public Use
  Company Number: PHHY2017FR201595

PATIENT
  Age: 64 Year
  Sex: Male
  Weight: 90 kg

DRUGS (7)
  1. AFINITOR [Suspect]
     Active Substance: EVEROLIMUS
     Dosage: 10 MG, DAILY
     Dates: start: 20170904, end: 20170910
  2. CREON [Concomitant]
     Active Substance: PANCRELIPASE AMYLASE\PANCRELIPASE LIPASE\PANCRELIPASE PROTEASE
     Indication: PROPHYLAXIS
     Route: 048
  3. SUTENT [Suspect]
     Active Substance: SUNITINIB MALATE
     Indication: PANCREATIC NEUROENDOCRINE TUMOUR
     Dosage: 25 MG, QD (1X/DAY)
     Route: 065
     Dates: start: 20150813
  4. SANDOSTATIN [Concomitant]
     Active Substance: OCTREOTIDE ACETATE
     Dosage: 30 MG, MONTHLY (ONCE IN 28 DAYS)
     Route: 030
     Dates: start: 20150813
  5. SUTENT [Suspect]
     Active Substance: SUNITINIB MALATE
     Dosage: 37.5 MG, QD
     Route: 065
     Dates: start: 20160425, end: 20170904
  6. SANDOSTATIN [Concomitant]
     Active Substance: OCTREOTIDE ACETATE
     Indication: NEUROENDOCRINE TUMOUR
     Dosage: 30 MG, QMO
     Route: 030
     Dates: start: 20150813
  7. AFINITOR [Suspect]
     Active Substance: EVEROLIMUS
     Indication: PANCREATIC NEUROENDOCRINE TUMOUR
     Dosage: 10 MG, QD
     Route: 065
     Dates: start: 20170904, end: 20170910

REACTIONS (15)
  - Macrocytosis [Fatal]
  - Hair colour changes [Fatal]
  - Skin depigmentation [Fatal]
  - Erythema [Fatal]
  - Mucosal inflammation [Fatal]
  - Oedema [Fatal]
  - Thrombocytopenia [Fatal]
  - Acute kidney injury [Fatal]
  - Periorbital oedema [Fatal]
  - Diarrhoea [Fatal]
  - Erythema [Fatal]
  - Lymphopenia [Fatal]
  - Urticaria [Fatal]
  - Liver function test abnormal [Fatal]
  - Disease progression [Fatal]

NARRATIVE: CASE EVENT DATE: 201508
